FAERS Safety Report 7093508-4 (Version None)
Quarter: 2010Q4

REPORT INFORMATION
  Report Type: 
  Country: None (occurrence: None)
  Receive Date: 20101110
  Receipt Date: 20090914
  Transmission Date: 20110411
  Serious: No
  Sender: FDA-Public Use
  Company Number: US-KINGPHARMUSA00001-K200901130

PATIENT
  Sex: Female

DRUGS (3)
  1. FLECTOR [Suspect]
     Dosage: UNK
     Route: 061
     Dates: start: 20090101, end: 20090101
  2. VIVELLE-DOT [Concomitant]
  3. SPIRONOLACTONE [Concomitant]

REACTIONS (2)
  - APPLICATION SITE RASH [None]
  - RASH [None]
